FAERS Safety Report 24234089 (Version 6)
Quarter: 2025Q1

REPORT INFORMATION
  Report Type: Spontaneous
  Country: US (occurrence: US)
  Receive Date: 20240821
  Receipt Date: 20250127
  Transmission Date: 20250408
  Serious: No
  Sender: ROCHE
  Company Number: US-ROCHE-10000060236

PATIENT
  Age: 43 Year
  Sex: Male
  Weight: 87.09 kg

DRUGS (7)
  1. HEMLIBRA [Suspect]
     Active Substance: EMICIZUMAB-KXWH
     Indication: Factor VIII deficiency
     Dosage: STRENGTH: 150MG/ML
     Route: 058
     Dates: start: 202307
  2. HEMLIBRA [Suspect]
     Active Substance: EMICIZUMAB-KXWH
     Dosage: STRENGTH: 60 MG/O.4ML
     Route: 058
     Dates: start: 202307
  3. HEMLIBRA [Suspect]
     Active Substance: EMICIZUMAB-KXWH
     Dosage: STRENGTH: 150MG/ML
     Route: 058
     Dates: start: 202307
  4. HEMLIBRA [Suspect]
     Active Substance: EMICIZUMAB-KXWH
     Dosage: STRENGTH: 150MG/ML
     Route: 058
     Dates: start: 202307
  5. HEMLIBRA [Suspect]
     Active Substance: EMICIZUMAB-KXWH
     Dosage: STRENGTH: 150MG/ML
     Route: 058
     Dates: start: 202307
  6. ALTUVIIIO [Concomitant]
     Active Substance: EFANESOCTOCOG ALFA
  7. NUWIQ [Concomitant]
     Active Substance: ANTIHEMOPHILIC FACTOR, HUMAN RECOMBINANT

REACTIONS (1)
  - Haemarthrosis [Not Recovered/Not Resolved]

NARRATIVE: CASE EVENT DATE: 20241013
